FAERS Safety Report 5244856-1 (Version None)
Quarter: 2007Q1

REPORT INFORMATION
  Report Type: 
  Country: None (occurrence: None)
  Receive Date: 20070221
  Receipt Date: 20070221
  Transmission Date: 20070707
  Serious: No
  Sender: FDA-Public Use
  Company Number: None

PATIENT
  Age: 54 Year
  Sex: Female
  Weight: 78.6 kg

DRUGS (4)
  1. TUBERCULIN PPD, 5TU/0.1ML, PARKEDALE PHARMAEUTICALS [Suspect]
     Indication: TUBERCULIN TEST
     Dosage: 0.1 UNITS (5TU) ONCE INTRADERMA
     Route: 023
     Dates: start: 20061218
  2. MEDROXYPROGESTERONE [Concomitant]
  3. LORATADINE [Concomitant]
  4. FERROUS SULFATE [Concomitant]

REACTIONS (4)
  - INJECTION SITE BRUISING [None]
  - INJECTION SITE IRRITATION [None]
  - INJECTION SITE PAIN [None]
  - PHARMACEUTICAL PRODUCT COMPLAINT [None]
